FAERS Safety Report 7264758-9 (Version None)
Quarter: 2011Q1

REPORT INFORMATION
  Report Type: 
  Country: None (occurrence: None)
  Receive Date: 20110131
  Receipt Date: 20110120
  Transmission Date: 20110831
  Serious: Yes (Death, Life-Threatening, Disabling)
  Sender: FDA-Public Use
  Company Number: JP-BAYER-200911473BYL

PATIENT
  Age: 73 Year
  Sex: Male
  Weight: 63 kg

DRUGS (25)
  1. ROCEPHIN [Concomitant]
  2. ATELEC [Concomitant]
     Dosage: AFTER DINNER
     Route: 048
     Dates: start: 20090427
  3. DECADRON [Concomitant]
  4. METHYCOBAL [Concomitant]
  5. MYSLEE [Concomitant]
  6. LOXONIN [Concomitant]
     Indication: PAIN
     Route: 048
     Dates: start: 20090427
  7. MUCOSTA [Concomitant]
     Indication: PAIN
  8. MAINTATE [Concomitant]
     Dosage: AFTER DINNER
     Route: 048
     Dates: start: 20090427
  9. ROCEPHIN [Concomitant]
     Indication: INFECTION PROPHYLAXIS
     Dosage: 2 G (DAILY DOSE), , INTRAVENOUS
     Route: 042
     Dates: start: 20090504, end: 20090506
  10. MUCOSTA [Concomitant]
  11. LIPITOR [Concomitant]
  12. DECADRON [Concomitant]
     Indication: HYPERSENSITIVITY
     Dosage: AFTER BREAKFAST
     Route: 048
     Dates: start: 20090427
  13. NEXAVAR [Suspect]
     Indication: RENAL CELL CARCINOMA
     Route: 048
     Dates: start: 20090407, end: 20090503
  14. ACTOS [Concomitant]
  15. METHYCOBAL [Concomitant]
     Indication: HYPERLIPIDAEMIA
     Dosage: AFTER EVERY MEAL
     Route: 048
     Dates: start: 20090427
  16. LOXONIN [Concomitant]
  17. MUCOSTA [Concomitant]
     Indication: GASTRITIS
     Route: 048
     Dates: start: 20090427
  18. LIPITOR [Concomitant]
     Indication: HYPERLIPIDAEMIA
     Dosage: AFTER DINNER
     Route: 048
     Dates: start: 20090427
  19. MYSLEE [Concomitant]
     Indication: INSOMNIA
     Route: 048
     Dates: start: 20090427
  20. CARDENALIN [Concomitant]
     Indication: CARDIAC FAILURE
     Dosage: AFTER DINNER
     Route: 048
     Dates: start: 20090427
  21. CARDENALIN [Concomitant]
  22. ACTOS [Concomitant]
     Indication: DIABETES MELLITUS
     Dosage: AFTER BREAKFAST
     Route: 048
     Dates: start: 20090427
  23. DALACIN-S [Concomitant]
     Indication: INFECTION PROPHYLAXIS
     Dosage: 1200 MG (DAILY DOSE), , INTRAVENOUS
     Route: 042
     Dates: start: 20090505, end: 20090506
  24. DALACIN-S [Concomitant]
  25. UREA [Concomitant]
     Route: 061
     Dates: start: 20090407

REACTIONS (5)
  - PALMAR-PLANTAR ERYTHRODYSAESTHESIA SYNDROME [None]
  - MULTI-ORGAN FAILURE [None]
  - RESPIRATORY DISORDER [None]
  - HEPATIC FUNCTION ABNORMAL [None]
  - DRUG HYPERSENSITIVITY [None]
